FAERS Safety Report 5508812-8 (Version None)
Quarter: 2007Q4

REPORT INFORMATION
  Report Type: 
  Country: None (occurrence: None)
  Receive Date: 20071107
  Receipt Date: 20071102
  Transmission Date: 20080405
  Serious: Yes (Death)
  Sender: FDA-Public Use
  Company Number: US-JNJFOC-20071100901

PATIENT
  Sex: Male
  Weight: 5.44 kg

DRUGS (1)
  1. CONCENTRATED INFANTS TYLENOL PLUS COLD + COUGH CHERRY [Suspect]
     Indication: RESPIRATORY TRACT CONGESTION
     Dosage: 2 DROPS ONCE

REACTIONS (2)
  - DRUG TOXICITY [None]
  - MYOCARDIAL INFARCTION [None]
